FAERS Safety Report 21124473 (Version 1)
Quarter: 2022Q3

REPORT INFORMATION
  Report Type: Spontaneous
  Country: US (occurrence: None)
  Receive Date: 20220722
  Receipt Date: 20220722
  Transmission Date: 20221027
  Serious: No
  Sender: FDA-Public Use
  Company Number: None

PATIENT
  Sex: Male

DRUGS (2)
  1. PULMOZYME [Suspect]
     Active Substance: DORNASE ALFA
     Indication: Infective pulmonary exacerbation of cystic fibrosis
     Dosage: FREQUENCY : TWICE A DAY;?OTHER ROUTE : VIA NEBULIZER ;?
     Route: 050
     Dates: start: 202010
  2. TOBRAMYCIN INHALATION SOLUTION [Suspect]
     Active Substance: TOBRAMYCIN
     Indication: Infective pulmonary exacerbation of cystic fibrosis
     Dosage: FREQUENCY : TWICE A DAY;?OTHER ROUTE : VIA NEBULIZER ;? 28 DAYS ON AND 28 DAYS OFF
     Route: 050
     Dates: start: 202203

REACTIONS (1)
  - Hospitalisation [None]
